FAERS Safety Report 7450589-3 (Version None)
Quarter: 2011Q2

REPORT INFORMATION
  Report Type: 
  Country: None (occurrence: None)
  Receive Date: 20110502
  Receipt Date: 20110419
  Transmission Date: 20111010
  Serious: Yes (Hospitalization, Other)
  Sender: FDA-Public Use
  Company Number: US-ELI_LILLY_AND_COMPANY-US201101003916

PATIENT
  Sex: Female

DRUGS (17)
  1. FORTEO [Suspect]
     Indication: OSTEOPOROSIS
     Dosage: 20 UG, DAILY (1/D)
     Dates: start: 20100801
  2. TYLENOL (CAPLET) [Concomitant]
     Dosage: 650 MG, BID
  3. PRAVASTATIN [Concomitant]
     Indication: BLOOD CHOLESTEROL ABNORMAL
  4. TRAMADOL [Concomitant]
     Dosage: 25 MG, QD
  5. CETIRIZINE HCL [Concomitant]
     Dosage: 10 MG, QD
  6. TRILIPIX [Concomitant]
     Dosage: 135 MG, QD
  7. LISINOPRIL [Concomitant]
     Dosage: 10 MG, QD
  8. PRILOSEC [Concomitant]
     Indication: GASTRIC DISORDER
  9. CALCIUM +VIT D [Concomitant]
     Dosage: 600 MG, UNK
  10. CALCIUM +VIT D [Concomitant]
     Dosage: 200 MG, UNK
  11. ASPIRIN [Concomitant]
     Dosage: 81 MG, QD
  12. VITAMIN B6 [Concomitant]
  13. FORTEO [Suspect]
     Dosage: 20 UG, QD
  14. FISH OIL [Concomitant]
     Dosage: 1200 MG, QD
  15. PRAVACHOL [Concomitant]
  16. METOPROLOL TARTRATE [Concomitant]
     Dosage: 100 MG, QD
  17. FORTEO [Suspect]
     Dosage: 20 UG, QD

REACTIONS (4)
  - INFLUENZA [None]
  - PULMONARY EMBOLISM [None]
  - INTERNATIONAL NORMALISED RATIO FLUCTUATION [None]
  - PAIN [None]
